FAERS Safety Report 9643134 (Version 2)
Quarter: 2013Q4

REPORT INFORMATION
  Report Type: Spontaneous
  Country: BE (occurrence: BE)
  Receive Date: 20131024
  Receipt Date: 20131126
  Transmission Date: 20140711
  Serious: Yes (Other)
  Sender: FDA-Public Use
  Company Number: BE-TEVA-439308ISR

PATIENT
  Sex: 0

DRUGS (1)
  1. TAMOXIFEN [Suspect]
     Indication: OESTROGEN RECEPTOR POSITIVE BREAST CANCER

REACTIONS (1)
  - Porphyria non-acute [Unknown]
